FAERS Safety Report 9858464 (Version 1)
Quarter: 2014Q1

REPORT INFORMATION
  Report Type: Spontaneous
  Country: US (occurrence: US)
  Receive Date: 20140131
  Receipt Date: 20140131
  Transmission Date: 20141002
  Serious: Yes (Other)
  Sender: FDA-Public Use
  Company Number: US-AMGEN-USASP2014006053

PATIENT
  Age: 74 Year
  Sex: Female
  Weight: 64.4 kg

DRUGS (15)
  1. ENBREL [Suspect]
     Indication: PRODUCT USED FOR UNKNOWN INDICATION
     Dosage: 50 MG, EVERY WEEK
     Route: 058
  2. HYDROCHLOROTH [Concomitant]
     Dosage: 12.5 MG, UNK
  3. CELEBREX [Concomitant]
     Dosage: 200 MG, UNK
  4. AVAPRO [Concomitant]
     Dosage: 300 MG, UNK
  5. WARFARIN [Concomitant]
     Dosage: 1 MG, UNK
  6. NADOLOL [Concomitant]
     Dosage: 20 MG, UNK
  7. SERTRALINE [Concomitant]
     Dosage: 25 MG, UNK
  8. VAGIFEM [Concomitant]
     Dosage: 10 MCG, UNK
  9. ASPIRIN [Concomitant]
     Dosage: 81 MG, UNK
  10. FISH OIL CONCENTRATE [Concomitant]
     Dosage: 1000 MG, UNK
  11. IRON [Concomitant]
     Dosage: 18 MG, UNK
  12. CALCIUM +D                         /00944201/ [Concomitant]
     Dosage: UNK
  13. VITAMIN C                          /00008001/ [Concomitant]
     Dosage: 1000 MG, UNK
  14. VITAMIN D3 [Concomitant]
     Dosage: 10000 UNIT, UNK
  15. OXYBUTYNIN [Concomitant]
     Dosage: 10 MG, UNK, ER

REACTIONS (3)
  - Parathyroid gland operation [Unknown]
  - Sinusitis [Recovered/Resolved]
  - Nasopharyngitis [Unknown]
